FAERS Safety Report 17647156 (Version 1)
Quarter: 2020Q2

REPORT INFORMATION
  Report Type: Spontaneous
  Country: US (occurrence: US)
  Receive Date: 20200408
  Receipt Date: 20200408
  Transmission Date: 20200713
  Serious: No
  Sender: FDA-Public Use
  Company Number: US-BAUSCH-BL-2020-008235

PATIENT
  Sex: Female

DRUGS (3)
  1. LINZESS [Concomitant]
     Active Substance: LINACLOTIDE
     Dosage: RESTARTED
  2. TRULANCE [Suspect]
     Active Substance: PLECANATIDE
     Indication: CONSTIPATION
     Route: 065
  3. LINZESS [Concomitant]
     Active Substance: LINACLOTIDE
     Indication: CONSTIPATION
     Dosage: STARTED SEVERAL YEARS AGO?IN THE MORNING BEFORE GETTING OUT OF BED

REACTIONS (1)
  - Abdominal pain upper [Unknown]
